FAERS Safety Report 8995079 (Version 1)
Quarter: 2013Q1

REPORT INFORMATION
  Report Type: Spontaneous
  Country: GB (occurrence: GB)
  Receive Date: 20130102
  Receipt Date: 20130102
  Transmission Date: 20140127
  Serious: Yes (Other)
  Sender: FDA-Public Use
  Company Number: GB-TEVA-378223ISR

PATIENT
  Age: 72 Year
  Sex: Male

DRUGS (9)
  1. ATORVASTATIN [Suspect]
     Dosage: AT NIGHT. STARTED }1 MONTH AGO
     Dates: end: 20121210
  2. SIMVASTATIN [Concomitant]
     Dosage: TAKEN FOR 2-3 YEARS.
  3. LISINOPRIL [Concomitant]
  4. AMLODIPINE [Concomitant]
     Dosage: STARTED INTIALLY ON 10MG AND THEN DECREASED TO 5MG. 2MG - WORKS WELL.
  5. DOXAZOSIN [Concomitant]
  6. ATENOLOL [Concomitant]
     Indication: HEART RATE INCREASED
  7. INSULIN GLARGINE [Concomitant]
     Dosage: 17UNITS/DAY
  8. RANITIDINE [Concomitant]
     Indication: ABDOMINAL DISCOMFORT
     Dosage: FOR STOMACH PROBLEMS ON SIMVASTATIN
  9. NOVORAPID [Concomitant]
     Dosage: 4 UNITS IN THE MORNING BEFORE BREAKFAST, 8 UNITS AT LUNCH TIME AND 11 UNITS IN THE EVENING

REACTIONS (6)
  - Myalgia [Recovered/Resolved]
  - Arthralgia [Recovered/Resolved]
  - Dyspnoea [Recovered/Resolved]
  - Asthenia [Recovered/Resolved]
  - Blood glucose increased [Recovered/Resolved]
  - Feeling drunk [Recovered/Resolved]
